FAERS Safety Report 9617239 (Version 1)
Quarter: 2013Q4

REPORT INFORMATION
  Report Type: Spontaneous
  Country: US (occurrence: None)
  Receive Date: 20131011
  Receipt Date: 20131011
  Transmission Date: 20140711
  Serious: Yes (Death)
  Sender: FDA-Public Use
  Company Number: None

PATIENT
  Age: 82 Year
  Sex: Female
  Weight: 78.4 kg

DRUGS (1)
  1. ALTEPLASE [Suspect]
     Indication: ISCHAEMIC STROKE
     Dosage: 7MG BOLUS AND 65MG INFUSION
     Route: 040
     Dates: start: 20130828, end: 20130828

REACTIONS (5)
  - Blood pressure increased [None]
  - Vomiting [None]
  - Blood pressure systolic [None]
  - Cerebral haemorrhage [None]
  - Oedema [None]
